FAERS Safety Report 6309166-X (Version None)
Quarter: 2009Q3

REPORT INFORMATION
  Report Type: 
  Country: None (occurrence: None)
  Receive Date: 20090814
  Receipt Date: 20090608
  Transmission Date: 20100115
  Serious: No
  Sender: FDA-Public Use
  Company Number: A0786437A

PATIENT
  Age: 81 Year
  Sex: Female

DRUGS (5)
  1. COREG CR [Suspect]
     Indication: HYPERTENSION
     Dosage: 10MG PER DAY
     Route: 048
     Dates: start: 20071101
  2. DIAVAN [Concomitant]
  3. ASPIRIN [Concomitant]
  4. MULTI-VITAMIN [Concomitant]
  5. VIACTIV [Concomitant]

REACTIONS (2)
  - ABNORMAL DREAMS [None]
  - ALOPECIA [None]
